FAERS Safety Report 11400461 (Version 1)
Quarter: 2015Q3

REPORT INFORMATION
  Report Type: Spontaneous
  Country: US (occurrence: US)
  Receive Date: 20150820
  Receipt Date: 20150820
  Transmission Date: 20151125
  Serious: No
  Sender: FDA-Public Use
  Company Number: US-PFIZER INC-2015273384

PATIENT
  Sex: Male

DRUGS (4)
  1. LYRICA [Suspect]
     Active Substance: PREGABALIN
     Indication: NEUROPATHY PERIPHERAL
     Dosage: UNK, 2X/DAY
  2. GABAPENTIN. [Concomitant]
     Active Substance: GABAPENTIN
     Indication: LIMB DISCOMFORT
     Dosage: UNK
  3. LYRICA [Suspect]
     Active Substance: PREGABALIN
     Indication: CRANIOCEREBRAL INJURY
  4. GABAPENTIN. [Concomitant]
     Active Substance: GABAPENTIN
     Indication: CRANIOCEREBRAL INJURY

REACTIONS (9)
  - Aggression [Unknown]
  - Feeling abnormal [Unknown]
  - Condition aggravated [Unknown]
  - Thinking abnormal [Unknown]
  - Dysphemia [Unknown]
  - Drug ineffective for unapproved indication [Unknown]
  - Gait disturbance [Unknown]
  - Balance disorder [Unknown]
  - Speech disorder [Unknown]
